FAERS Safety Report 6534766-1 (Version None)
Quarter: 2010Q1

REPORT INFORMATION
  Report Type: 
  Country: None (occurrence: None)
  Receive Date: 20100112
  Receipt Date: 20091230
  Transmission Date: 20100710
  Serious: Yes (Other)
  Sender: FDA-Public Use
  Company Number: IT-WATSON-2009-11305

PATIENT
  Age: 25 Year
  Sex: Female

DRUGS (2)
  1. FORTAMET [Suspect]
     Indication: HYPERINSULINAEMIA
     Dosage: 500 MG, TID
  2. AMISULPRIDE [Suspect]
     Indication: MENTAL DISORDER
     Dosage: 200 MG, DAILY

REACTIONS (2)
  - DRUG INTERACTION [None]
  - RHABDOMYOLYSIS [None]
